FAERS Safety Report 7638455-1 (Version None)
Quarter: 2011Q3

REPORT INFORMATION
  Report Type: 
  Country: None (occurrence: None)
  Receive Date: 20110727
  Receipt Date: 20110725
  Transmission Date: 20111222
  Serious: Yes (Death, Life-Threatening, Hospitalization)
  Sender: FDA-Public Use
  Company Number: US-B.I. PHARMACEUTICALS,INC./RIDGEFIELD-2011-BP-16478BP

PATIENT
  Age: 90 Year
  Sex: Female
  Weight: 52.16 kg

DRUGS (1)
  1. PRADAXA [Suspect]
     Indication: ATRIAL FIBRILLATION
     Dosage: 150 MG
     Dates: start: 20110519, end: 20110627

REACTIONS (6)
  - FATIGUE [None]
  - ASTHENIA [None]
  - RESPIRATORY FAILURE [None]
  - DIZZINESS [None]
  - CONFUSIONAL STATE [None]
  - ASPIRATION [None]
